FAERS Safety Report 8517167-6 (Version None)
Quarter: 2012Q3

REPORT INFORMATION
  Report Type: 
  Country: None (occurrence: None)
  Receive Date: 20120706
  Receipt Date: 20120626
  Transmission Date: 20120928
  Serious: Yes (Death, Other)
  Sender: FDA-Public Use
  Company Number: AUR-APL-2012-02873

PATIENT
  Age: 76 Year
  Sex: Female

DRUGS (9)
  1. PREVISCAN (FLUINDIONE) [Suspect]
     Indication: ATRIAL FIBRILLATION
     Dosage: 15 MG ALTERNATING WITH 10 MG, DAILY, ORAL
     Route: 048
     Dates: end: 20120417
  2. ACETAMINOPHEN [Concomitant]
  3. PAROXETINE HCL [Suspect]
     Indication: PRODUCT USED FOR UNKNOWN INDICATION
     Dosage: 20 MG, 1/DAY, ORAL
     Route: 048
     Dates: end: 20120417
  4. CLONAZEPAM [Concomitant]
  5. XANAX [Suspect]
     Indication: PRODUCT USED FOR UNKNOWN INDICATION
     Dosage: 1 MG SCORED TABLET 1/DAY, ORAL
     Route: 048
     Dates: end: 20120417
  6. CRESTOR [Suspect]
     Indication: PRODUCT USED FOR UNKNOWN INDICATION
     Dosage: 5 MG, 1/DAY, ORAL
     Route: 048
     Dates: end: 20120417
  7. AMIODARONE HCL [Suspect]
     Indication: PRODUCT USED FOR UNKNOWN INDICATION
     Dosage: 200 MG, 1/DAY, ORAL
     Route: 048
     Dates: end: 20120417
  8. IRBESARTAN [Suspect]
     Indication: PRODUCT USED FOR UNKNOWN INDICATION
     Dosage: 300 MG, 1/DAY, ORAL
     Route: 048
     Dates: end: 20120417
  9. LAMOTRIGINE [Suspect]
     Indication: PRODUCT USED FOR UNKNOWN INDICATION
     Dosage: 100 MG, THREE DOSAGE FORMS PER DAY (1-1/2-1), ORAL
     Route: 048
     Dates: end: 20120417

REACTIONS (4)
  - COMA [None]
  - INTERNATIONAL NORMALISED RATIO INCREASED [None]
  - CEREBRAL HAEMORRHAGE [None]
  - CENTRAL NERVOUS SYSTEM LESION [None]
